FAERS Safety Report 4730273-7 (Version None)
Quarter: 2005Q3

REPORT INFORMATION
  Report Type: 
  Country: None (occurrence: None)
  Receive Date: 20050801
  Receipt Date: 20050718
  Transmission Date: 20060218
  Serious: Yes (Disabling)
  Sender: FDA-Public Use
  Company Number: US-ROCHE-411238

PATIENT
  Sex: Female

DRUGS (1)
  1. ACCUTANE [Suspect]
     Indication: DRUG USE FOR UNKNOWN INDICATION
     Route: 048

REACTIONS (14)
  - ABDOMINAL PAIN [None]
  - AFFECT LABILITY [None]
  - ARTHRALGIA [None]
  - AUTOMATISM [None]
  - BOWEL MOVEMENT IRREGULARITY [None]
  - DELIRIUM [None]
  - DEPRESSION [None]
  - GASTROINTESTINAL DISORDER [None]
  - HAEMORRHAGE [None]
  - IMPULSE-CONTROL DISORDER [None]
  - MEMORY IMPAIRMENT [None]
  - MENTAL DISORDER [None]
  - RECTAL HAEMORRHAGE [None]
  - SUICIDAL IDEATION [None]
